FAERS Safety Report 24418376 (Version 4)
Quarter: 2024Q4

REPORT INFORMATION
  Report Type: Spontaneous
  Country: US (occurrence: US)
  Receive Date: 20241009
  Receipt Date: 20241225
  Transmission Date: 20250115
  Serious: No
  Sender: SANOFI AVENTIS
  Company Number: US-SA-2024SA290371

PATIENT
  Age: 66 Year
  Sex: Male

DRUGS (5)
  1. DUPIXENT [Suspect]
     Active Substance: DUPILUMAB
     Indication: Dermatitis atopic
     Dosage: 300 MG, QOW
     Route: 058
     Dates: start: 20221123, end: 2024
  2. DUPIXENT [Suspect]
     Active Substance: DUPILUMAB
     Indication: Dermatitis atopic
     Dosage: 300 MG, QOW
     Route: 058
     Dates: start: 20240925
  3. HYDROCODONE BITARTRATE AND ACETAMINOPHEN [Concomitant]
     Active Substance: ACETAMINOPHEN\HYDROCODONE BITARTRATE
  4. VITAMINS [Concomitant]
     Active Substance: VITAMINS
  5. Triamcinolon [Concomitant]

REACTIONS (8)
  - Sleep disorder due to a general medical condition [Unknown]
  - Infection [Unknown]
  - Injection site bruising [Not Recovered/Not Resolved]
  - Oral herpes [Unknown]
  - Eye irritation [Unknown]
  - Injection site reaction [Recovered/Resolved]
  - Dry eye [Unknown]
  - Therapeutic response shortened [Unknown]

NARRATIVE: CASE EVENT DATE: 20240101
